FAERS Safety Report 6711614-8 (Version None)
Quarter: 2010Q2

REPORT INFORMATION
  Report Type: 
  Country: None (occurrence: None)
  Receive Date: 20100505
  Receipt Date: 20100503
  Transmission Date: 20101027
  Serious: Yes (Life-Threatening)
  Sender: FDA-Public Use
  Company Number: PHEH2010US02419

PATIENT
  Sex: Female
  Weight: 86.168 kg

DRUGS (5)
  1. RECLAST [Suspect]
     Indication: OSTEOPOROSIS
     Dosage: ONCE A YEAR INFUSION
     Route: 042
     Dates: start: 20100208, end: 20100208
  2. ANTIHYPERTENSIVES [Concomitant]
  3. ATENOLOL [Concomitant]
     Indication: HYPERTENSION
     Dosage: EVERYDAY
     Route: 048
  4. VICODIN [Concomitant]
     Indication: PAIN
     Dosage: UNK
     Route: 048
  5. THYROID TAB [Concomitant]
     Indication: HYPOTHYROIDISM
     Dosage: EVERYDAY
     Route: 048

REACTIONS (10)
  - ARTHRALGIA [None]
  - CHILLS [None]
  - FEELING ABNORMAL [None]
  - HEADACHE [None]
  - INFLUENZA [None]
  - LOCAL SWELLING [None]
  - PAIN [None]
  - POLLAKIURIA [None]
  - PYREXIA [None]
  - VISION BLURRED [None]
